FAERS Safety Report 17208519 (Version 1)
Quarter: 2019Q4

REPORT INFORMATION
  Report Type: Other
  Country: CA (occurrence: CA)
  Receive Date: 20191227
  Receipt Date: 20191227
  Transmission Date: 20200122
  Serious: Yes (Hospitalization, Other)
  Sender: FDA-Public Use
  Company Number: CA-APOTEX-2019AP026466

PATIENT
  Age: 69 Year
  Sex: Female

DRUGS (3)
  1. RAMIPRIL. [Interacting]
     Active Substance: RAMIPRIL
     Dosage: 2 DF, QD
     Route: 048
  2. RAPAMUNE [Interacting]
     Active Substance: SIROLIMUS
     Indication: PRODUCT USED FOR UNKNOWN INDICATION
     Dosage: UNK
     Route: 065
  3. RAMIPRIL. [Suspect]
     Active Substance: RAMIPRIL
     Indication: BLOOD PRESSURE MEASUREMENT
     Dosage: 5 MG, BID
     Route: 048

REACTIONS (5)
  - Hypoaesthesia oral [Recovered/Resolved]
  - Labelled drug-drug interaction medication error [Recovered/Resolved]
  - Angioedema [Recovered/Resolved]
  - Lip swelling [Recovered/Resolved]
  - Paraesthesia oral [Recovered/Resolved]
